FAERS Safety Report 13566165 (Version 2)
Quarter: 2017Q3

REPORT INFORMATION
  Report Type: Spontaneous
  Country: US (occurrence: US)
  Receive Date: 20170521
  Receipt Date: 20170713
  Transmission Date: 20171127
  Serious: No
  Sender: FDA-Public Use
  Company Number: US-CELGENEUS-USA-20170502523

PATIENT
  Age: 35 Year
  Sex: Female

DRUGS (1)
  1. OTEZLA [Suspect]
     Active Substance: APREMILAST
     Indication: PSORIASIS
     Dosage: 60 MILLIGRAM
     Route: 048
     Dates: start: 20170412

REACTIONS (5)
  - Head discomfort [Unknown]
  - Headache [Unknown]
  - Anxiety [Unknown]
  - Panic attack [Unknown]
  - Hypertension [Unknown]

NARRATIVE: CASE EVENT DATE: 2017
